FAERS Safety Report 9295070 (Version 1)
Quarter: 2013Q1

REPORT INFORMATION
  Report Type: Spontaneous
  Country: US (occurrence: None)
  Receive Date: 20121227
  Receipt Date: 20121227
  Transmission Date: 20140127
  Serious: No
  Sender: FDA-Public Use
  Company Number: PHEH2012US021749

PATIENT
  Sex: 0

DRUGS (21)
  1. AFINITOR [Suspect]
     Indication: BREAST CANCER
     Route: 048
  2. ALPHAGAN (BRIMONIDINE TARTRATE) [Concomitant]
  3. AZOPT (BRINZOLAMIDE) [Concomitant]
  4. AVASTIN (BEVACIZUMAB) [Concomitant]
  5. CYMBALTA (DULOXETINE HYDROCHLORIDE) [Concomitant]
  6. SINGULAIR [Concomitant]
  7. ADVAIR (FLUTICASONE PROPIONATE, SALMETEROL XINAFOATE) [Concomitant]
  8. ZOMETA (ZOLEDRONIC ACID) [Concomitant]
  9. XANAX (ALPRAZOLAM) [Concomitant]
  10. ALBUTEROL (SALBUTAMOL) [Concomitant]
  11. OMEPRAZOLE (OMEPRAZOLE) [Concomitant]
  12. SEROQUEL (QUETIAPINE FUMARATE) [Concomitant]
  13. DILAUDID (HYDROMORPHONE HYDROCHLORIDE) [Concomitant]
  14. MORTIN (SULFAMETHOXAZOLE, TRIMETHOPRIM) [Concomitant]
  15. ASPIRIN (ACETYLSALICYLIC ACID) [Concomitant]
  16. FOLIC ACID (FOLIC ACID) [Concomitant]
  17. POTASSIUM (POTASSIUM) [Concomitant]
  18. CALCIUM (CALCIUM) [Concomitant]
  19. SENOKOT (SENNA ALEXANDRINA FRUIT) [Concomitant]
  20. STOOL SOFTENER (DOCUSATE SODIUM) [Concomitant]
  21. TAMOXIFEN [Concomitant]

REACTIONS (1)
  - Drug ineffective [None]
